FAERS Safety Report 6048769-7 (Version None)
Quarter: 2009Q1

REPORT INFORMATION
  Report Type: 
  Country: None (occurrence: None)
  Receive Date: 20090123
  Receipt Date: 20090113
  Transmission Date: 20090719
  Serious: Yes (Hospitalization)
  Sender: FDA-Public Use
  Company Number: DE-NOVOPROD-283129

PATIENT
  Age: 64 Year
  Sex: Male

DRUGS (3)
  1. ACTRAPID [Suspect]
     Indication: INSULIN-REQUIRING TYPE 2 DIABETES MELLITUS
     Dosage: 34 IU, QD
     Route: 058
  2. LANTUS [Suspect]
     Dosage: 20 U, QD
     Route: 058
  3. TAMSULIN [Suspect]
     Dosage: .4 MG, QD
     Route: 048
     Dates: start: 20080101

REACTIONS (1)
  - SYNCOPE [None]
